FAERS Safety Report 8342117-5 (Version None)
Quarter: 2012Q2

REPORT INFORMATION
  Report Type: 
  Country: None (occurrence: None)
  Receive Date: 20120507
  Receipt Date: 20120501
  Transmission Date: 20120825
  Serious: No
  Sender: FDA-Public Use
  Company Number: US-TEVA-336490USA

PATIENT
  Sex: Male
  Weight: 61.29 kg

DRUGS (4)
  1. ADVAIR DISKUS 100/50 [Concomitant]
  2. BLOOD PRESSURE MED [Concomitant]
  3. PROAIR HFA [Suspect]
     Indication: EMPHYSEMA
     Dosage: 2 PUFFS Q 2 - 4 HOURS
     Route: 045
     Dates: start: 20120101, end: 20120101
  4. IPRATROPIUM BROMIDE [Concomitant]

REACTIONS (2)
  - THROAT IRRITATION [None]
  - TRACHEAL DISORDER [None]
